FAERS Safety Report 24956943 (Version 1)
Quarter: 2025Q1

REPORT INFORMATION
  Report Type: Spontaneous
  Country: CN (occurrence: CN)
  Receive Date: 20250211
  Receipt Date: 20250211
  Transmission Date: 20250408
  Serious: Yes (Other)
  Sender: PFIZER
  Company Number: CN-PFIZER INC-PV202500015400

PATIENT
  Age: 73 Year
  Sex: Male
  Weight: 46 kg

DRUGS (1)
  1. LINEZOLID [Suspect]
     Active Substance: LINEZOLID
     Indication: Infection
     Dosage: 300 ML, 2X/DAY
     Route: 041
     Dates: start: 20250131, end: 20250205

REACTIONS (3)
  - Platelet count decreased [Unknown]
  - Drug level increased [Unknown]
  - Off label use [Unknown]

NARRATIVE: CASE EVENT DATE: 20250131
